FAERS Safety Report 14599079 (Version 2)
Quarter: 2018Q1

REPORT INFORMATION
  Report Type: Report from Study
  Country: US (occurrence: US)
  Receive Date: 20180305
  Receipt Date: 20180306
  Transmission Date: 20180509
  Serious: Yes (Life-Threatening, Hospitalization, Other)
  Sender: FDA-Public Use
  Company Number: US-JNJFOC-20180130745

PATIENT
  Age: 78 Year
  Sex: Male

DRUGS (26)
  1. JANTOVEN [Concomitant]
     Active Substance: WARFARIN SODIUM
  2. IMBRUVICA [Suspect]
     Active Substance: IBRUTINIB
     Indication: CHRONIC LYMPHOCYTIC LEUKAEMIA
     Route: 048
     Dates: start: 20171103
  3. TYLENOL [Concomitant]
     Active Substance: ACETAMINOPHEN
  4. LOTREL [Concomitant]
     Active Substance: AMLODIPINE BESYLATE\BENAZEPRIL HYDROCHLORIDE
  5. BRILINTA [Concomitant]
     Active Substance: TICAGRELOR
  6. CARVEDILOL. [Concomitant]
     Active Substance: CARVEDILOL
  7. ACETAZOLAMIDE. [Concomitant]
     Active Substance: ACETAZOLAMIDE
  8. IRON [Concomitant]
     Active Substance: IRON
  9. PRALUENT [Concomitant]
     Active Substance: ALIROCUMAB
  10. ZETIA [Concomitant]
     Active Substance: EZETIMIBE
  11. COQ10 [Concomitant]
     Active Substance: UBIDECARENONE
  12. RANEXA [Concomitant]
     Active Substance: RANOLAZINE
  13. FISH OIL [Concomitant]
     Active Substance: FISH OIL
  14. MULTIVITAMINS [Concomitant]
     Active Substance: VITAMINS
  15. IMBRUVICA [Suspect]
     Active Substance: IBRUTINIB
     Indication: CHRONIC LYMPHOCYTIC LEUKAEMIA
     Route: 048
     Dates: start: 20171102
  16. ALLOPURINOL. [Concomitant]
     Active Substance: ALLOPURINOL
  17. DIPHENHYDRAMINE HYDROCHLORIDE. [Concomitant]
     Active Substance: DIPHENHYDRAMINE HYDROCHLORIDE
  18. STOOL SOFTENER (DOCUSATE) [Concomitant]
     Active Substance: DOCUSATE
  19. ACIPHEX [Concomitant]
     Active Substance: RABEPRAZOLE SODIUM
  20. BYSTOLIC [Concomitant]
     Active Substance: NEBIVOLOL HYDROCHLORIDE
  21. CRESTOR [Concomitant]
     Active Substance: ROSUVASTATIN CALCIUM
  22. LEXAPRO [Concomitant]
     Active Substance: ESCITALOPRAM OXALATE
  23. PREDNISONE. [Concomitant]
     Active Substance: PREDNISONE
  24. AMOXICILLIN. [Concomitant]
     Active Substance: AMOXICILLIN
  25. NITROSTAT [Concomitant]
     Active Substance: NITROGLYCERIN
  26. PROTONIX [Concomitant]
     Active Substance: PANTOPRAZOLE SODIUM

REACTIONS (10)
  - Pleural effusion [Unknown]
  - Nasopharyngitis [Recovering/Resolving]
  - Incorrect dose administered [Unknown]
  - Gastrointestinal haemorrhage [Unknown]
  - Transfusion [Unknown]
  - Subdural haematoma [Unknown]
  - Rash macular [Not Recovered/Not Resolved]
  - Off label use [Unknown]
  - Adverse drug reaction [Not Recovered/Not Resolved]
  - Nasal dryness [Not Recovered/Not Resolved]

NARRATIVE: CASE EVENT DATE: 201711
